FAERS Safety Report 14589718 (Version 3)
Quarter: 2018Q2

REPORT INFORMATION
  Report Type: Report from Study
  Country: None (occurrence: US)
  Receive Date: 20180302
  Receipt Date: 20180601
  Transmission Date: 20180711
  Serious: Yes (Hospitalization, Other)
  Sender: FDA-Public Use
  Company Number: US-ABBVIE-18K-163-2270418-00

PATIENT
  Age: 48 Year
  Sex: Male
  Weight: 93.07 kg

DRUGS (1)
  1. HUMIRA [Suspect]
     Active Substance: ADALIMUMAB
     Indication: RHEUMATOID ARTHRITIS
     Route: 058
     Dates: start: 201708, end: 20180108

REACTIONS (11)
  - Cardiac arrest [Recovered/Resolved]
  - Abdominal distension [Recovered/Resolved]
  - White blood cell count increased [Recovered/Resolved]
  - Abdominal pain upper [Recovered/Resolved]
  - Intestinal obstruction [Recovered/Resolved]
  - Colostomy [Unknown]
  - Ileostomy [Unknown]
  - Colostomy infection [Recovered/Resolved]
  - Procedural pain [Recovered/Resolved]
  - Gastric dilatation [Recovered/Resolved]
  - Surgical failure [Unknown]

NARRATIVE: CASE EVENT DATE: 2018
